FAERS Safety Report 14107530 (Version 1)
Quarter: 2017Q4

REPORT INFORMATION
  Report Type: Spontaneous
  Country: US (occurrence: US)
  Receive Date: 20171019
  Receipt Date: 20171019
  Transmission Date: 20180321
  Serious: Yes (Hospitalization, Other)
  Sender: FDA-Public Use
  Company Number: US-009507513-1710USA004825

PATIENT
  Age: 67 Year
  Sex: Male
  Weight: 75.9 kg

DRUGS (22)
  1. COLAC [Concomitant]
  2. BREVOXYL [Concomitant]
     Active Substance: BENZOYL PEROXIDE
  3. LASIX [Concomitant]
     Active Substance: FUROSEMIDE
  4. CLARITIN [Concomitant]
     Active Substance: LORATADINE
  5. SENOKOT [Concomitant]
     Active Substance: SENNOSIDES
  6. LOVENOX [Concomitant]
     Active Substance: ENOXAPARIN SODIUM
  7. TYLENOL [Concomitant]
     Active Substance: ACETAMINOPHEN
  8. DULCOLAX NOS [Concomitant]
     Active Substance: BISACODYL OR DOCUSATE SODIUM
  9. BACLOFEN. [Concomitant]
     Active Substance: BACLOFEN
  10. ZINCATE [Concomitant]
  11. ASCORBIC ACID. [Concomitant]
     Active Substance: ASCORBIC ACID
  12. COLLAGENASE [Concomitant]
     Active Substance: COLLAGENASE CLOSTRIDIUM HISTOLYTICUM
  13. NEURONTIN [Concomitant]
     Active Substance: GABAPENTIN
  14. ZEPATIER [Suspect]
     Active Substance: ELBASVIR\GRAZOPREVIR
     Indication: HEPATITIS C
     Dosage: 1 TAB, DAILY
     Route: 048
     Dates: start: 20170417, end: 20170721
  15. AMITIZA [Concomitant]
     Active Substance: LUBIPROSTONE
  16. KENALOG [Concomitant]
     Active Substance: TRIAMCINOLONE ACETONIDE
  17. MELATONIN [Concomitant]
     Active Substance: MELATONIN
  18. MIRALAX [Concomitant]
     Active Substance: POLYETHYLENE GLYCOL 3350
  19. OMEGA-3 MARINE TRIGLYCERIDES [Concomitant]
     Active Substance: FISH OIL
  20. MAGNESIUM (UNSPECIFIED) [Concomitant]
     Active Substance: MAGNESIUM
  21. TAMSULOSIN HYDROCHLORIDE. [Concomitant]
     Active Substance: TAMSULOSIN HYDROCHLORIDE
  22. LIORESAL [Concomitant]
     Active Substance: BACLOFEN

REACTIONS (1)
  - Dural arteriovenous fistula [Unknown]

NARRATIVE: CASE EVENT DATE: 20170515
